FAERS Safety Report 8383405-6 (Version None)
Quarter: 2012Q2

REPORT INFORMATION
  Report Type: 
  Country: None (occurrence: None)
  Receive Date: 20120524
  Receipt Date: 20120517
  Transmission Date: 20120825
  Serious: Yes (Other)
  Sender: FDA-Public Use
  Company Number: BR-PFIZER INC-2009258911

PATIENT
  Age: 56 Year
  Sex: Female
  Weight: 58 kg

DRUGS (4)
  1. LYRICA [Suspect]
     Dosage: 75 MG, 1X/DAY
     Dates: start: 20110101
  2. LYRICA [Suspect]
     Indication: INTERVERTEBRAL DISC PROTRUSION
     Dosage: 75 MG, 2X/DAY
     Route: 048
     Dates: start: 20090821
  3. AMITRIL [Concomitant]
     Indication: RELAXATION THERAPY
     Dosage: UNK
     Route: 048
     Dates: start: 20090810
  4. MIOSAN [Concomitant]
     Indication: PAIN
     Dosage: UNK
     Dates: start: 20100101

REACTIONS (7)
  - HYPOAESTHESIA [None]
  - DRUG EFFECT DECREASED [None]
  - PAIN [None]
  - INTERVERTEBRAL DISC PROTRUSION [None]
  - PERIPHERAL COLDNESS [None]
  - EXPIRED DRUG ADMINISTERED [None]
  - OEDEMA [None]
